FAERS Safety Report 9031603 (Version 1)
Quarter: 2013Q1

REPORT INFORMATION
  Report Type: Spontaneous
  Country: BE (occurrence: BE)
  Receive Date: 20130124
  Receipt Date: 20130124
  Transmission Date: 20140127
  Serious: Yes (Other)
  Sender: FDA-Public Use
  Company Number: BE-ROCHE-1181436

PATIENT
  Age: 54 Year
  Sex: Female
  Weight: 80 kg

DRUGS (6)
  1. HERCEPTIN [Suspect]
     Indication: BREAST CANCER METASTATIC
     Route: 065
     Dates: start: 20120303, end: 20120626
  2. HERCEPTIN [Suspect]
     Route: 065
     Dates: start: 20120716, end: 20121227
  3. XELODA [Suspect]
     Indication: BREAST CANCER METASTATIC
     Route: 065
     Dates: start: 20120716
  4. XELODA [Suspect]
     Route: 065
     Dates: end: 20130110
  5. FEMARA [Suspect]
     Indication: BREAST CANCER METASTATIC
     Route: 065
     Dates: start: 201112, end: 20120626
  6. ZOMETA [Suspect]
     Indication: BREAST CANCER METASTATIC
     Route: 065
     Dates: start: 201112, end: 20120626

REACTIONS (1)
  - Malignant neoplasm progression [Unknown]
